FAERS Safety Report 10010103 (Version 1)
Quarter: 2014Q1

REPORT INFORMATION
  Report Type: Spontaneous
  Country: US (occurrence: US)
  Receive Date: 20140312
  Receipt Date: 20140312
  Transmission Date: 20141002
  Serious: No
  Sender: FDA-Public Use
  Company Number: US-INCYTE CORPORATION-2013IN001421

PATIENT
  Age: 62 Year
  Sex: Male

DRUGS (12)
  1. JAKAFI [Suspect]
     Dosage: 20 MG, BID
     Route: 048
     Dates: start: 20130413, end: 20130628
  2. AMLODIPINE [Concomitant]
  3. ANAGRELIDE [Concomitant]
  4. ASA [Concomitant]
  5. CARVEDILOL [Concomitant]
  6. IMDUR [Concomitant]
  7. LASIX [Concomitant]
  8. LANTUS [Concomitant]
  9. NITROGLYCERINE [Concomitant]
  10. PERCOCET [Concomitant]
  11. PRAVASTATIN [Concomitant]
  12. ZOFRAN [Concomitant]
     Dosage: UNK

REACTIONS (2)
  - Gastrointestinal disorder [Unknown]
  - Transfusion [Unknown]
